FAERS Safety Report 19283985 (Version 3)
Quarter: 2021Q2

REPORT INFORMATION
  Report Type: Spontaneous
  Country: US (occurrence: US)
  Receive Date: 20210521
  Receipt Date: 20210527
  Transmission Date: 20210717
  Serious: No
  Sender: FDA-Public Use
  Company Number: US-BIOGEN-2021BI01012402

PATIENT
  Sex: Female

DRUGS (13)
  1. CETIRIZINE [Concomitant]
     Active Substance: CETIRIZINE HYDROCHLORIDE
     Route: 065
  2. SINGULAIR [Concomitant]
     Active Substance: MONTELUKAST SODIUM
     Route: 065
  3. AMPYRA [Suspect]
     Active Substance: DALFAMPRIDINE
     Route: 065
  4. ALBUTEROL. [Concomitant]
     Active Substance: ALBUTEROL
     Dosage: 108MCG(90MCG ALBUTEROL BASE, NEB .63 MG
     Route: 065
  5. BUSPIRONE [Concomitant]
     Active Substance: BUSPIRONE HYDROCHLORIDE
     Route: 065
  6. ADVAIR DISKUS [Concomitant]
     Active Substance: FLUTICASONE PROPIONATE\SALMETEROL XINAFOATE
     Dosage: ADVAIR DISKUS 250/50MCG
     Route: 065
  7. CRESTATIN [Concomitant]
     Route: 065
  8. MELATONIN [Concomitant]
     Active Substance: MELATONIN
     Route: 065
  9. VUMERITY [Suspect]
     Active Substance: DIROXIMEL FUMARATE
     Route: 048
  10. BUPROPION. [Concomitant]
     Active Substance: BUPROPION
     Route: 065
  11. VUMERITY [Suspect]
     Active Substance: DIROXIMEL FUMARATE
     Indication: MULTIPLE SCLEROSIS
     Route: 048
  12. AMPYRA [Suspect]
     Active Substance: DALFAMPRIDINE
     Indication: MULTIPLE SCLEROSIS
     Route: 065
     Dates: start: 201908
  13. WELLBUTRIN [Concomitant]
     Active Substance: BUPROPION HYDROCHLORIDE
     Route: 065

REACTIONS (1)
  - Menstrual disorder [Not Recovered/Not Resolved]
